FAERS Safety Report 8832204 (Version 2)
Quarter: 2012Q4

REPORT INFORMATION
  Report Type: 
  Country: US (occurrence: US)
  Receive Date: 20121009
  Receipt Date: 20121018
  Transmission Date: 20130627
  Serious: Yes (Other)
  Sender: FDA-Public Use
  Company Number: US-UCBSA-068268

PATIENT
  Sex: Male

DRUGS (5)
  1. KEPPRA XR [Suspect]
     Dates: start: 2010, end: 20120927
  2. KEPPRA [Suspect]
     Dates: end: 2010
  3. LYRICA [Concomitant]
  4. ZANAFLEX [Concomitant]
  5. NUCYNTA [Concomitant]

REACTIONS (3)
  - Convulsion [Recovered/Resolved]
  - Intervertebral disc protrusion [Unknown]
  - Inappropriate schedule of drug administration [Unknown]
